FAERS Safety Report 9375533 (Version 2)
Quarter: 2013Q3

REPORT INFORMATION
  Report Type: Report from Study
  Country: US (occurrence: US)
  Receive Date: 20130628
  Receipt Date: 20130801
  Transmission Date: 20140515
  Serious: Yes (Other)
  Sender: FDA-Public Use
  Company Number: PHEH2012US007632

PATIENT
  Sex: Male
  Weight: 76.19 kg

DRUGS (9)
  1. GLEEVEC [Suspect]
     Indication: SOFT TISSUE CANCER
     Dosage: UNK UKN, UNK
     Dates: start: 20120322
  2. GLEEVEC [Suspect]
     Dosage: 400 MG, QD
     Route: 048
     Dates: start: 20120329
  3. GLEEVEC [Suspect]
     Dosage: 400 MG,DAILY
     Dates: start: 20120329
  4. GLEEVEC [Suspect]
     Dosage: 400 MG, QD
     Route: 048
     Dates: start: 20120402
  5. GLEEVEC [Suspect]
     Dosage: 400 MG, QD
     Route: 048
  6. GLEEVEC [Suspect]
     Dosage: 600 MG, DAILY
     Route: 048
  7. CHERATUSSIN AC [Concomitant]
     Dosage: 1 TEASPOONFUL, Q4H
     Route: 048
  8. LASIX [Concomitant]
     Dosage: 20 MG, BID
     Route: 048
  9. MS CONTIN [Concomitant]
     Dosage: UNK, Q12H
     Route: 048

REACTIONS (34)
  - Chest wall mass [Unknown]
  - Dermatofibrosarcoma protuberans [Unknown]
  - Pulmonary mass [Unknown]
  - Breath sounds abnormal [Unknown]
  - Pleural effusion [Unknown]
  - Eosinophil percentage increased [Unknown]
  - Lung neoplasm malignant [Unknown]
  - Ascites [Unknown]
  - Mediastinal shift [Unknown]
  - Globulins increased [Unknown]
  - Blood glucose increased [Unknown]
  - Carbon dioxide abnormal [Unknown]
  - Albumin globulin ratio decreased [Unknown]
  - Frequent bowel movements [Unknown]
  - Haemoglobin decreased [Unknown]
  - Blood albumin decreased [Unknown]
  - Blood bilirubin increased [Unknown]
  - Mean platelet volume decreased [Unknown]
  - Mean cell haemoglobin concentration decreased [Unknown]
  - Red blood cell count decreased [Unknown]
  - Blood alkaline phosphatase increased [Unknown]
  - Blood lactate dehydrogenase increased [Unknown]
  - Chest pain [Unknown]
  - Fatigue [Unknown]
  - Hypoaesthesia [Unknown]
  - Oedema peripheral [Unknown]
  - Cough [Unknown]
  - Arthralgia [Unknown]
  - Abdominal pain upper [Unknown]
  - Face oedema [Unknown]
  - Pain [Unknown]
  - Dyspnoea [Unknown]
  - Asthenia [Unknown]
  - Haematocrit decreased [Unknown]
